FAERS Safety Report 13890434 (Version 3)
Quarter: 2017Q4

REPORT INFORMATION
  Report Type: Spontaneous
  Country: US (occurrence: US)
  Receive Date: 20170822
  Receipt Date: 20171201
  Transmission Date: 20180320
  Serious: Yes (Other)
  Sender: FDA-Public Use
  Company Number: US-ELI_LILLY_AND_COMPANY-US201708005180

PATIENT
  Age: 56 Year
  Sex: Female
  Weight: 105 kg

DRUGS (7)
  1. TRULICITY [Suspect]
     Active Substance: DULAGLUTIDE
     Indication: WEIGHT DECREASED
     Dosage: 0.75 MG, UNKNOWN
     Route: 065
     Dates: start: 20170726
  2. TRULICITY [Suspect]
     Active Substance: DULAGLUTIDE
     Indication: TYPE 2 DIABETES MELLITUS
  3. JANUMET [Concomitant]
     Active Substance: METFORMIN HYDROCHLORIDE\SITAGLIPTIN PHOSPHATE
     Indication: PRODUCT USED FOR UNKNOWN INDICATION
  4. LISINOPRIL. [Suspect]
     Active Substance: LISINOPRIL
     Indication: PRODUCT USED FOR UNKNOWN INDICATION
     Dosage: UNK, UNKNOWN
     Route: 065
     Dates: start: 20170630, end: 20170731
  5. LIPITOR [Concomitant]
     Active Substance: ATORVASTATIN CALCIUM
     Indication: PRODUCT USED FOR UNKNOWN INDICATION
  6. ACTOS [Suspect]
     Active Substance: PIOGLITAZONE HYDROCHLORIDE
     Indication: PRODUCT USED FOR UNKNOWN INDICATION
     Dosage: UNK, UNKNOWN
     Route: 065
     Dates: start: 20170730, end: 20170731
  7. INVOKANA [Concomitant]
     Active Substance: CANAGLIFLOZIN
     Indication: PRODUCT USED FOR UNKNOWN INDICATION

REACTIONS (15)
  - Asthenia [Unknown]
  - Poisoning [Unknown]
  - Myocardial infarction [Recovered/Resolved]
  - Feeling abnormal [Unknown]
  - Vomiting [Unknown]
  - Flatulence [Unknown]
  - Nausea [Unknown]
  - Pancreatitis acute [Recovered/Resolved]
  - Hypoaesthesia [Unknown]
  - Abdominal pain [Unknown]
  - Eructation [Unknown]
  - Feeling abnormal [Unknown]
  - Diarrhoea [Unknown]
  - Abdominal distension [Unknown]
  - Oliguria [Unknown]

NARRATIVE: CASE EVENT DATE: 20170731
